FAERS Safety Report 7361284-3 (Version None)
Quarter: 2011Q1

REPORT INFORMATION
  Report Type: 
  Country: None (occurrence: None)
  Receive Date: 20110318
  Receipt Date: 20110310
  Transmission Date: 20110831
  Serious: Yes (Hospitalization)
  Sender: FDA-Public Use
  Company Number: A0883857A

PATIENT
  Age: 53 Year
  Sex: Female
  Weight: 73 kg

DRUGS (5)
  1. CARBOPLATIN [Suspect]
     Indication: BREAST CANCER
     Route: 042
     Dates: start: 20100917
  2. TRASTUZUMAB [Suspect]
     Indication: BREAST CANCER
     Dosage: 4MGK WEEKLY
     Route: 042
     Dates: start: 20100917
  3. LAPATINIB [Suspect]
     Indication: BREAST CANCER
     Dosage: 750MG PER DAY
     Route: 048
     Dates: start: 20100917, end: 20100923
  4. DOCETAXEL [Suspect]
     Indication: BREAST CANCER
     Dosage: 75MGM2 EVERY 3 WEEKS
     Route: 042
     Dates: start: 20100917
  5. IV FLUIDS [Concomitant]

REACTIONS (10)
  - PAIN [None]
  - NEUTROPENIA [None]
  - VOMITING [None]
  - ENTERITIS [None]
  - ABDOMINAL PAIN [None]
  - DIARRHOEA [None]
  - NAUSEA [None]
  - PYREXIA [None]
  - COLITIS [None]
  - ANAEMIA [None]
